FAERS Safety Report 6016376-8 (Version None)
Quarter: 2008Q4

REPORT INFORMATION
  Report Type: 
  Country: None (occurrence: None)
  Receive Date: 20081222
  Receipt Date: 20081210
  Transmission Date: 20090506
  Serious: Yes (Death)
  Sender: FDA-Public Use
  Company Number: JP-PFIZER INC-2008154465

PATIENT
  Sex: Male
  Weight: 55 kg

DRUGS (14)
  1. ZYVOX [Suspect]
     Indication: PYOTHORAX
     Route: 042
     Dates: start: 20081118, end: 20081130
  2. FIRSTCIN [Concomitant]
     Route: 042
  3. MINOPHAGEN C [Concomitant]
     Route: 042
     Dates: start: 20081121, end: 20081205
  4. ADELAVIN [Concomitant]
     Route: 042
     Dates: start: 20081121, end: 20081205
  5. OLMETEC [Concomitant]
     Dates: end: 20081205
  6. ACETYLSALICYLIC ACID [Concomitant]
     Dates: end: 20081205
  7. AMLODIN [Concomitant]
     Dates: end: 20081205
  8. PREDONINE [Concomitant]
     Dates: end: 20081205
  9. FAMOTIDINE [Concomitant]
     Dates: end: 20081205
  10. BIOFERMIN [Concomitant]
     Dates: end: 20081205
  11. EUGLUCON [Concomitant]
     Dates: end: 20081205
  12. SODIUM CHLORIDE [Concomitant]
     Route: 042
     Dates: start: 20081121, end: 20081205
  13. MUCOSOLVAN [Concomitant]
     Dates: end: 20081205
  14. MODACIN [Concomitant]
     Route: 042
     Dates: start: 20081128, end: 20081205

REACTIONS (1)
  - DEATH [None]
